FAERS Safety Report 15152944 (Version 1)
Quarter: 2018Q3

REPORT INFORMATION
  Report Type: Spontaneous
  Country: US (occurrence: US)
  Receive Date: 20180717
  Receipt Date: 20180717
  Transmission Date: 20181010
  Serious: No
  Sender: FDA-Public Use
  Company Number: US-PFIZER INC-2018280620

PATIENT
  Age: 62 Year
  Sex: Male

DRUGS (1)
  1. SUTENT [Suspect]
     Active Substance: SUNITINIB MALATE
     Indication: RENAL CELL CARCINOMA
     Dosage: UNK

REACTIONS (6)
  - Decreased appetite [Unknown]
  - Platelet count decreased [Unknown]
  - Asthenia [Unknown]
  - White blood cell count decreased [Unknown]
  - Neoplasm progression [Unknown]
  - Diarrhoea [Unknown]
